FAERS Safety Report 7150422 (Version 2)
Quarter: 2018Q4

REPORT INFORMATION
  Report Type: Spontaneous
  Country: GB (occurrence: GB)
  Receive Date: 20091016
  Receipt Date: 20181221
  Transmission Date: 20190205
  Serious: Yes (Other)
  Sender: FDA-Public Use
  Company Number: GB-RANBAXY-2007RR-09719

PATIENT
  Age: 30 Year
  Sex: Female

DRUGS (5)
  1. PROGESTERONE. [Concomitant]
     Active Substance: PROGESTERONE
  2. TINIDAZOLE. [Concomitant]
     Active Substance: TINIDAZOLE
  3. LOPERAMIDE [Concomitant]
     Active Substance: LOPERAMIDE
  4. CIPROFLOXACIN. [Suspect]
     Active Substance: CIPROFLOXACIN
     Indication: ABDOMINAL DISCOMFORT
     Dosage: 1000 MG, QD
     Route: 048
     Dates: start: 20070626, end: 20070704
  5. DOXYCYCLINE. [Concomitant]
     Active Substance: DOXYCYCLINE

REACTIONS (11)
  - Hypoaesthesia [Unknown]
  - Neuropathy peripheral [Unknown]
  - Pyrexia [Unknown]
  - Insomnia [Unknown]
  - Paraesthesia [Recovering/Resolving]
  - Paranoia [Recovered/Resolved]
  - Thinking abnormal [Recovered/Resolved]
  - Diarrhoea [Unknown]
  - Insomnia [Recovered/Resolved]
  - Anxiety [Recovered/Resolved]
  - Haematochezia [Recovered/Resolved]

NARRATIVE: CASE EVENT DATE: 20070628
